FAERS Safety Report 10661886 (Version 1)
Quarter: 2014Q4

REPORT INFORMATION
  Report Type: Spontaneous
  Country: US (occurrence: None)
  Receive Date: 20141216
  Receipt Date: 20141216
  Transmission Date: 20150529
  Serious: Yes (Other)
  Sender: FDA-Public Use
  Company Number: 2014-20917

PATIENT
  Age: 59 Year
  Sex: Female

DRUGS (4)
  1. EYLEA [Suspect]
     Active Substance: AFLIBERCEPT
     Indication: MACULAR OEDEMA
     Route: 031
     Dates: start: 20140828, end: 20140828
  2. ATACAND [Concomitant]
     Active Substance: CANDESARTAN CILEXETIL
  3. EYLEA [Suspect]
     Active Substance: AFLIBERCEPT
     Indication: RETINAL VEIN OCCLUSION
     Route: 031
     Dates: start: 20140828, end: 20140828
  4. INSULIN [Concomitant]
     Active Substance: INSULIN NOS

REACTIONS (3)
  - Rhinorrhoea [None]
  - Blindness transient [None]
  - Vision blurred [None]

NARRATIVE: CASE EVENT DATE: 20141105
